FAERS Safety Report 15622098 (Version 1)
Quarter: 2018Q4

REPORT INFORMATION
  Report Type: Spontaneous
  Country: FI (occurrence: FI)
  Receive Date: 20181115
  Receipt Date: 20181115
  Transmission Date: 20190205
  Serious: Yes (Other)
  Sender: FDA-Public Use
  Company Number: PHHY2014FI016532

PATIENT
  Age: 36 Year
  Sex: Female

DRUGS (3)
  1. SPIRONOLACTONE. [Concomitant]
     Active Substance: SPIRONOLACTONE
     Indication: ACNE
     Dosage: 100 MG, QD
     Route: 048
  2. GILENYA [Suspect]
     Active Substance: FINGOLIMOD HYDROCHLORIDE
     Indication: MULTIPLE SCLEROSIS
     Dosage: 0.5 MG, QD
     Route: 048
     Dates: start: 20130508, end: 20181011
  3. AZALIA [Concomitant]
     Indication: CONTRACEPTION
     Route: 048

REACTIONS (2)
  - Papillary thyroid cancer [Unknown]
  - Rash pustular [Unknown]

NARRATIVE: CASE EVENT DATE: 20130801
